FAERS Safety Report 20741214 (Version 4)
Quarter: 2023Q1

REPORT INFORMATION
  Report Type: Spontaneous
  Country: US (occurrence: US)
  Receive Date: 20220422
  Receipt Date: 20230203
  Transmission Date: 20230418
  Serious: Yes (Hospitalization, Other)
  Sender: FDA-Public Use
  Company Number: US-PFIZER INC-202200584907

PATIENT
  Age: 80 Year
  Sex: Male

DRUGS (2)
  1. XELJANZ [Suspect]
     Active Substance: TOFACITINIB CITRATE
     Dosage: 5 MG
  2. XELJANZ [Suspect]
     Active Substance: TOFACITINIB CITRATE
     Dosage: 5 MG, 1X/DAY

REACTIONS (8)
  - Pneumonia [Unknown]
  - COVID-19 [Unknown]
  - Hypoacusis [Unknown]
  - Mental impairment [Unknown]
  - Intentional product misuse [Unknown]
  - Asthenia [Unknown]
  - Illness [Unknown]
  - Fatigue [Unknown]
